FAERS Safety Report 11609117 (Version 1)
Quarter: 2015Q4

REPORT INFORMATION
  Report Type: Report from Study
  Country: CA (occurrence: CA)
  Receive Date: 20151007
  Receipt Date: 20151007
  Transmission Date: 20160304
  Serious: Yes (Hospitalization)
  Sender: FDA-Public Use
  Company Number: CA-ABBVIE-15P-028-1475086-00

PATIENT
  Sex: Female
  Weight: 66.28 kg

DRUGS (1)
  1. HUMIRA [Suspect]
     Active Substance: ADALIMUMAB
     Indication: CROHN^S DISEASE
     Route: 058
     Dates: start: 20090403, end: 20140706

REACTIONS (4)
  - Intestinal obstruction [Unknown]
  - Uterine hypertonus [Unknown]
  - Crohn^s disease [Not Recovered/Not Resolved]
  - Exposure during pregnancy [Unknown]
